FAERS Safety Report 9939658 (Version 1)
Quarter: 2014Q1

REPORT INFORMATION
  Report Type: Report from Study
  Country: US (occurrence: US)
  Receive Date: 20140303
  Receipt Date: 20140303
  Transmission Date: 20141002
  Serious: No
  Sender: FDA-Public Use
  Company Number: US-ABBVIE-13P-163-1032437-00

PATIENT
  Age: 43 Year
  Sex: Female

DRUGS (7)
  1. HUMIRA [Suspect]
     Indication: CROHN^S DISEASE
  2. GIANVI [Concomitant]
     Indication: CONTRACEPTION
     Dosage: DAILY
  3. SUPER B COMPLEX [Concomitant]
     Indication: PRODUCT USED FOR UNKNOWN INDICATION
     Dates: start: 2012
  4. FISH OIL [Concomitant]
     Indication: PRODUCT USED FOR UNKNOWN INDICATION
     Dates: start: 2012
  5. VITAMIN D [Concomitant]
     Indication: PRODUCT USED FOR UNKNOWN INDICATION
     Dates: start: 2012
  6. DYAZIDE [Concomitant]
     Indication: HYPERTENSION
     Dates: start: 201209
  7. AMITRIPTYLINE [Concomitant]
     Indication: SLEEP DISORDER THERAPY
     Dates: start: 20121220

REACTIONS (2)
  - Hypertension [Unknown]
  - Insomnia [Unknown]
